FAERS Safety Report 9202308 (Version 2)
Quarter: 2013Q4

REPORT INFORMATION
  Report Type: Spontaneous
  Country: US (occurrence: US)
  Receive Date: 20130401
  Receipt Date: 20131125
  Transmission Date: 20140711
  Serious: Yes (Other)
  Sender: FDA-Public Use
  Company Number: US-BAYER-2013-038475

PATIENT
  Sex: Female

DRUGS (10)
  1. YAZ [Suspect]
  2. YASMIN [Suspect]
  3. OCELLA [Suspect]
  4. LEVORA [Concomitant]
  5. ZYRTEC [Concomitant]
  6. NAPROXEN [Concomitant]
     Dosage: 550 MG, UNK
  7. DICYCLOMINE [Concomitant]
     Dosage: 10 MG, UNK
  8. TRAMADOC [Concomitant]
     Dosage: 50 MG, UNK
  9. METOCLOPRAM [Concomitant]
     Dosage: 10 MG, UNK
  10. HYDROCODONE/ACETAMINOPHEN [Concomitant]
     Dosage: 7.5-500 MG

REACTIONS (5)
  - Gallbladder injury [None]
  - Cholelithiasis [None]
  - Injury [None]
  - Pain [None]
  - Pain [None]
